FAERS Safety Report 6006160-3 (Version None)
Quarter: 2008Q4

REPORT INFORMATION
  Report Type: 
  Country: None (occurrence: None)
  Receive Date: 20081217
  Receipt Date: 20071204
  Transmission Date: 20090506
  Serious: No
  Sender: FDA-Public Use
  Company Number: US-AMGEN-KDL255350

PATIENT
  Sex: Female

DRUGS (1)
  1. ENBREL [Suspect]
     Indication: PSORIATIC ARTHROPATHY
     Route: 058
     Dates: start: 20061230

REACTIONS (12)
  - BRONCHITIS [None]
  - DIVERTICULITIS [None]
  - DRUG HYPERSENSITIVITY [None]
  - HEADACHE [None]
  - INJECTION SITE ERYTHEMA [None]
  - INJECTION SITE HAEMATOMA [None]
  - INJECTION SITE IRRITATION [None]
  - INSOMNIA [None]
  - LARYNGITIS [None]
  - OCULAR HYPERAEMIA [None]
  - PAIN [None]
  - URTICARIA [None]
